FAERS Safety Report 25196666 (Version 1)
Quarter: 2025Q2

REPORT INFORMATION
  Report Type: Spontaneous
  Country: FR (occurrence: FR)
  Receive Date: 20250415
  Receipt Date: 20250415
  Transmission Date: 20250716
  Serious: Yes (Hospitalization)
  Sender: TEVA
  Company Number: None

PATIENT
  Age: 69 Year
  Sex: Male
  Weight: 64 kg

DRUGS (14)
  1. OLANZAPINE [Suspect]
     Active Substance: OLANZAPINE
     Indication: Acute psychosis
     Route: 048
     Dates: start: 20250311, end: 20250313
  2. OLANZAPINE [Suspect]
     Active Substance: OLANZAPINE
     Indication: Acute psychosis
     Route: 048
     Dates: start: 20250313, end: 20250316
  3. OLANZAPINE [Suspect]
     Active Substance: OLANZAPINE
     Indication: Acute psychosis
     Route: 048
     Dates: start: 20250316, end: 20250316
  4. LOXAPINE SUCCINATE [Suspect]
     Active Substance: LOXAPINE SUCCINATE
     Indication: Acute psychosis
     Dosage: 50MG 3 TIMES A DAY
     Route: 048
     Dates: start: 20250303, end: 20250306
  5. CYAMEMAZINE [Suspect]
     Active Substance: CYAMEMAZINE
     Indication: Acute psychosis
     Dosage: 25MG 3 TIMES A DAY
     Route: 048
     Dates: start: 20250316, end: 20250317
  6. CYAMEMAZINE [Suspect]
     Active Substance: CYAMEMAZINE
     Indication: Acute psychosis
     Dosage: 30MG 3 TIMES A DAY
     Route: 048
     Dates: start: 20250306, end: 20250313
  7. CYAMEMAZINE [Suspect]
     Active Substance: CYAMEMAZINE
     Indication: Acute psychosis
     Dosage: 50MG 3 TIMES A DAY
     Route: 048
     Dates: start: 20250313, end: 20250316
  8. METHADONE HYDROCHLORIDE [Concomitant]
     Active Substance: METHADONE HYDROCHLORIDE
     Indication: Drug dependence
     Route: 048
  9. AMLODIPINE [Concomitant]
     Active Substance: AMLODIPINE BESYLATE
     Indication: Hypertension
     Route: 048
  10. RISPERIDONE [Suspect]
     Active Substance: RISPERIDONE
     Indication: Acute psychosis
     Route: 048
     Dates: start: 20250310, end: 20250311
  11. RISPERIDONE [Suspect]
     Active Substance: RISPERIDONE
     Indication: Acute psychosis
     Route: 048
     Dates: start: 20250306, end: 20250310
  12. ELIQUIS [Concomitant]
     Active Substance: APIXABAN
     Indication: Deep vein thrombosis
     Dosage: 10MG MORNING AND EVENING
     Route: 048
     Dates: start: 20250314
  13. DIAZEPAM [Concomitant]
     Active Substance: DIAZEPAM
     Indication: Acute psychosis
     Dosage: 5MG 2 TIMES A DAY
     Route: 048
     Dates: start: 20250316
  14. DIAZEPAM [Concomitant]
     Active Substance: DIAZEPAM
     Indication: Acute psychosis
     Dosage: 5MG 3 TIMES A DAY
     Route: 048
     Dates: start: 20250314, end: 20250316

REACTIONS (1)
  - Neuroleptic malignant syndrome [Recovering/Resolving]

NARRATIVE: CASE EVENT DATE: 20250314
